FAERS Safety Report 7579225-2 (Version None)
Quarter: 2011Q2

REPORT INFORMATION
  Report Type: 
  Country: None (occurrence: None)
  Receive Date: 20110628
  Receipt Date: 20110616
  Transmission Date: 20111010
  Serious: Yes (Other)
  Sender: FDA-Public Use
  Company Number: US-ELI_LILLY_AND_COMPANY-US201106006367

PATIENT
  Age: 63 Year
  Sex: Female

DRUGS (5)
  1. CYMBALTA [Suspect]
     Indication: FIBROMYALGIA
     Dosage: 60 MG, QD
  2. THYROID PREPARATIONS [Concomitant]
  3. DIAZEPAM [Concomitant]
  4. ACYCLOVIR [Concomitant]
  5. ACLOVIR [Concomitant]

REACTIONS (3)
  - RENAL IMPAIRMENT [None]
  - POLLAKIURIA [None]
  - URINARY TRACT INFECTION [None]
